FAERS Safety Report 5247145-4 (Version None)
Quarter: 2007Q1

REPORT INFORMATION
  Report Type: 
  Country: None (occurrence: None)
  Receive Date: 20070221
  Receipt Date: 20070209
  Transmission Date: 20070707
  Serious: Yes (Other)
  Sender: FDA-Public Use
  Company Number: 2007US000337

PATIENT
  Age: 63 Year
  Sex: Female

DRUGS (4)
  1. VESICARE [Suspect]
     Indication: HYPERTONIC BLADDER
     Dosage: 2.5 MG, ORAL
     Route: 048
  2. LISINOPRIL [Concomitant]
  3. ESTROGENS (TRIEST) [Concomitant]
  4. MEDROXYPROGESTERONE [Concomitant]

REACTIONS (5)
  - CSF TEST ABNORMAL [None]
  - GAIT DISTURBANCE [None]
  - MOTOR DYSFUNCTION [None]
  - PROCEDURAL PAIN [None]
  - WRONG TECHNIQUE IN DRUG USAGE PROCESS [None]
